FAERS Safety Report 6168491-6 (Version None)
Quarter: 2009Q2

REPORT INFORMATION
  Report Type: 
  Country: None (occurrence: None)
  Receive Date: 20090427
  Receipt Date: 20090422
  Transmission Date: 20091009
  Serious: Yes (Other)
  Sender: FDA-Public Use
  Company Number: A0780376A

PATIENT
  Sex: Male
  Weight: 69 kg

DRUGS (3)
  1. PAXIL CR [Suspect]
     Indication: DEPRESSION
     Dosage: 25MG PER DAY
     Dates: start: 20090216
  2. PREDNISONE [Concomitant]
     Dates: start: 20090318, end: 20090325
  3. DEXTRAN 70 + HYPROMELLOSE [Concomitant]
     Dates: start: 20090318

REACTIONS (2)
  - FACIAL PALSY [None]
  - NAUSEA [None]
